FAERS Safety Report 11823869 (Version 1)
Quarter: 2015Q4

REPORT INFORMATION
  Report Type: Spontaneous
  Country: US (occurrence: US)
  Receive Date: 20151210
  Receipt Date: 20151210
  Transmission Date: 20160305
  Serious: Yes (Hospitalization)
  Sender: FDA-Public Use
  Company Number: US-HORIZON-ACT-0212-2015

PATIENT
  Age: 77 Year
  Sex: Female

DRUGS (1)
  1. ACTIMMUNE [Suspect]
     Active Substance: INTERFERON GAMMA-1B
     Indication: PULMONARY FIBROSIS
     Dosage: 200 ?G TIW
     Dates: start: 2015

REACTIONS (2)
  - Lung infection [Unknown]
  - Off label use [Unknown]

NARRATIVE: CASE EVENT DATE: 2015
